FAERS Safety Report 9380963 (Version 1)
Quarter: 2013Q3

REPORT INFORMATION
  Report Type: Spontaneous
  Country: US (occurrence: US)
  Receive Date: 20130703
  Receipt Date: 20130703
  Transmission Date: 20140515
  Serious: Yes (Hospitalization, Other)
  Sender: FDA-Public Use
  Company Number: US-ROCHE-1243513

PATIENT
  Age: 57 Year
  Sex: Male

DRUGS (3)
  1. PEGASYS [Suspect]
     Indication: HEPATITIS C
     Dosage: FOR 30 WEEKS
     Route: 065
     Dates: end: 20130624
  2. RIBAVIRIN [Suspect]
     Indication: HEPATITIS C
     Dosage: FOR 30 WEEKS
     Route: 048
     Dates: end: 20130625
  3. INCIVEK [Suspect]
     Indication: HEPATITIS C
     Dosage: FOR 8 WEEKS
     Route: 065

REACTIONS (9)
  - Red blood cell count decreased [Unknown]
  - White blood cell count decreased [Unknown]
  - Lung neoplasm malignant [Not Recovered/Not Resolved]
  - Rash [Recovered/Resolved]
  - Pruritus [Recovered/Resolved]
  - Nail disorder [Recovering/Resolving]
  - Pancreatitis [Recovering/Resolving]
  - Gallbladder polyp [Recovered/Resolved]
  - Rash [Recovered/Resolved]
